FAERS Safety Report 7927245-8 (Version None)
Quarter: 2011Q4

REPORT INFORMATION
  Report Type: 
  Country: None (occurrence: None)
  Receive Date: 20111118
  Receipt Date: 20111111
  Transmission Date: 20120403
  Serious: Yes (Other)
  Sender: FDA-Public Use
  Company Number: US-AMGEN-USASP2011056382

PATIENT
  Age: 57 Year
  Sex: Male
  Weight: 96.417 kg

DRUGS (5)
  1. SULFASALAZINE [Concomitant]
     Dosage: 1500 MG, BID
     Dates: start: 20110329
  2. VOLTAREN [Concomitant]
  3. ENBREL [Suspect]
     Indication: PSORIATIC ARTHROPATHY
     Dosage: 50 MG, QWK
     Route: 058
     Dates: start: 20110509, end: 20110627
  4. METHOTREXATE [Concomitant]
     Dosage: 20 MG, QWK
     Dates: start: 20110509
  5. COUMADIN [Concomitant]

REACTIONS (4)
  - PSORIATIC ARTHROPATHY [None]
  - VERTEBRAL FORAMINAL STENOSIS [None]
  - DRUG INEFFECTIVE [None]
  - INTERVERTEBRAL DISC DEGENERATION [None]
